FAERS Safety Report 9423731 (Version 2)
Quarter: 2013Q3

REPORT INFORMATION
  Report Type: Spontaneous
  Country: US (occurrence: US)
  Receive Date: 20130728
  Receipt Date: 20130826
  Transmission Date: 20140515
  Serious: Yes (Life-Threatening, Other)
  Sender: FDA-Public Use
  Company Number: PHEH2013US015768

PATIENT
  Sex: Male

DRUGS (17)
  1. EXELON [Suspect]
     Dosage: UNK UKN, UNK
     Route: 048
  2. EXELON PATCH [Suspect]
     Dosage: 9.5 MG, QD
     Route: 062
  3. PENICILLIN G SODIUM [Suspect]
     Dosage: UNK UKN, UNK
  4. FOSAMAX [Suspect]
     Dosage: UNK UKN, UNK
  5. SULFA [Suspect]
     Dosage: UNK UKN, UNK
  6. LEVOTHYROXINE [Concomitant]
     Dosage: 75 MG, QD
  7. LASIX [Concomitant]
     Dosage: 20 MG, UNK
  8. ISOSORBIDE [Concomitant]
     Dosage: 120 MG, BID
  9. OCUVITE [Concomitant]
     Dosage: UNK UKN, QD
  10. ALLEGRA [Concomitant]
     Dosage: 180 MG, UNK
  11. RANITIDINE [Concomitant]
     Dosage: 300 MG, UNK
  12. SINGULAIR [Concomitant]
     Dosage: 10 MG, UNK
  13. LAXATIVE [Concomitant]
     Dosage: UNK UKN, UNK
  14. TESTO//TESTOSTERONE [Concomitant]
     Dosage: 1 DF, EVERY MONTH
  15. ANTIVERT [Concomitant]
     Dosage: UNK UKN, UNK
  16. TRAVATAN [Concomitant]
  17. BETOPIC [Concomitant]
     Dosage: UNK UKN, UNK

REACTIONS (4)
  - Drug hypersensitivity [Unknown]
  - Blindness [Unknown]
  - Cardiac disorder [Unknown]
  - Incorrect drug administration duration [Unknown]
